FAERS Safety Report 19183161 (Version 1)
Quarter: 2021Q2

REPORT INFORMATION
  Report Type: Spontaneous
  Country: GB (occurrence: GB)
  Receive Date: 20210426
  Receipt Date: 20210426
  Transmission Date: 20210717
  Serious: Yes (Other)
  Sender: FDA-Public Use
  Company Number: GB-JNJFOC-20210438815

PATIENT
  Age: 38 Year
  Sex: Female

DRUGS (1)
  1. HALDOL [Suspect]
     Active Substance: HALOPERIDOL
     Indication: ILL-DEFINED DISORDER
     Route: 051
     Dates: start: 20210116, end: 20210117

REACTIONS (3)
  - Swollen tongue [Recovered/Resolved]
  - Blindness [Recovered/Resolved]
  - Gait inability [Recovered/Resolved]
